FAERS Safety Report 24057218 (Version 1)
Quarter: 2024Q3

REPORT INFORMATION
  Report Type: Spontaneous
  Country: BR (occurrence: BR)
  Receive Date: 20240706
  Receipt Date: 20240706
  Transmission Date: 20241017
  Serious: Yes (Hospitalization)
  Sender: ABBVIE
  Company Number: BR-ABBOTT-2024A-1383727

PATIENT
  Sex: Female

DRUGS (1)
  1. DEPAKOTE [Suspect]
     Active Substance: DIVALPROEX SODIUM
     Indication: Seizure
     Dosage: 6 CAPSULES A DAY?SPRINKLE 125MG
     Route: 048

REACTIONS (4)
  - Seizure [Unknown]
  - COVID-19 [Unknown]
  - Product physical issue [Unknown]
  - Vomiting [Recovered/Resolved]

NARRATIVE: CASE EVENT DATE: 20240605
